FAERS Safety Report 16029562 (Version 1)
Quarter: 2019Q1

REPORT INFORMATION
  Report Type: Spontaneous
  Country: US (occurrence: US)
  Receive Date: 20190304
  Receipt Date: 20190304
  Transmission Date: 20190418
  Serious: No
  Sender: FDA-Public Use
  Company Number: US-ORPHAN EUROPE-2063488

PATIENT
  Age: 68 Year
  Sex: Male

DRUGS (2)
  1. CARBAGLU [Suspect]
     Active Substance: CARGLUMIC ACID
     Dates: start: 2018
  2. CARBAGLU [Suspect]
     Active Substance: CARGLUMIC ACID
     Indication: HOMOCYSTINURIA
     Dates: start: 20180723

REACTIONS (3)
  - Ammonia increased [Unknown]
  - Off label use [Unknown]
  - Diarrhoea [Unknown]

NARRATIVE: CASE EVENT DATE: 20180723
